FAERS Safety Report 9060502 (Version 3)
Quarter: 2017Q3

REPORT INFORMATION
  Report Type: Spontaneous
  Country: IT (occurrence: HR)
  Receive Date: 20130125
  Receipt Date: 20170721
  Transmission Date: 20171128
  Serious: Yes (Other)
  Sender: FDA-Public Use
  Company Number: HR-FRI-1000041768

PATIENT
  Age: 47 Year
  Sex: Female

DRUGS (2)
  1. NEBIVOLOL HCL UNK [Suspect]
     Active Substance: NEBIVOLOL
     Indication: HYPERTENSION
     Dosage: 2.5 MG, UNK
     Route: 048
     Dates: start: 2008, end: 2010
  2. NEBIVOLOL HCL UNK [Suspect]
     Active Substance: NEBIVOLOL
     Dosage: 5 MG, QD
     Route: 048
     Dates: start: 2010, end: 20121115

REACTIONS (5)
  - Hyperkalaemia [Recovered/Resolved]
  - Fatigue [Recovered/Resolved]
  - Weight decreased [Unknown]
  - Oedema peripheral [Recovered/Resolved]
  - Decreased appetite [Unknown]

NARRATIVE: CASE EVENT DATE: 2011
